FAERS Safety Report 20404496 (Version 1)
Quarter: 2022Q1

REPORT INFORMATION
  Report Type: Spontaneous
  Country: US (occurrence: US)
  Receive Date: 20220131
  Receipt Date: 20220131
  Transmission Date: 20220424
  Serious: No
  Sender: FDA-Public Use
  Company Number: US-LUPIN PHARMACEUTICALS INC.-2022-01018

PATIENT

DRUGS (9)
  1. AZITHROMYCIN [Suspect]
     Active Substance: AZITHROMYCIN
     Indication: COVID-19
     Dosage: 500 MILLIGRAM, QD (DAY 1)
     Route: 048
  2. AZITHROMYCIN [Suspect]
     Active Substance: AZITHROMYCIN
     Dosage: 250 MILLIGRAM (DAYS 2 TO 5)
     Route: 048
  3. ASCORBIC ACID [Suspect]
     Active Substance: ASCORBIC ACID
     Indication: COVID-19
     Dosage: UNK
     Route: 042
  4. MAGNESIUM CHLORIDE [Suspect]
     Active Substance: MAGNESIUM CHLORIDE
     Indication: COVID-19
     Dosage: UNK
     Route: 042
  5. PYRIDOXINE [Suspect]
     Active Substance: PYRIDOXINE
     Indication: COVID-19
     Dosage: UNK
     Route: 042
  6. METHYLCOBALAMIN [Suspect]
     Active Substance: METHYLCOBALAMIN
     Indication: COVID-19
     Dosage: 2000 MICROGRAM
     Route: 042
  7. SALINE [Suspect]
     Active Substance: SODIUM CHLORIDE
     Indication: COVID-19
     Dosage: 50 MILLILITER (INFUSED OVER 15 MINUTES)
     Route: 042
  8. LACTATED RINGERS SOLUTION [Suspect]
     Active Substance: CALCIUM CHLORIDE\POTASSIUM CHLORIDE\SODIUM CHLORIDE\SODIUM LACTATE
     Indication: COVID-19
     Dosage: 250 MILLILITER (INFUSED OVER 45 MINUTES)
     Route: 042
  9. ZINC SULFATE [Suspect]
     Active Substance: ZINC SULFATE
     Indication: COVID-19
     Dosage: UNK
     Route: 042

REACTIONS (1)
  - Off label use [Unknown]
